FAERS Safety Report 20115428 (Version 2)
Quarter: 2021Q4

REPORT INFORMATION
  Report Type: Spontaneous
  Country: TH (occurrence: None)
  Receive Date: 20211126
  Receipt Date: 20211215
  Transmission Date: 20220303
  Serious: Yes (Hospitalization)
  Sender: FDA-Public Use
  Company Number: TH-Unichem Pharmaceuticals (USA) Inc-UCM202111-001106

PATIENT
  Age: 20 Year
  Sex: Female

DRUGS (5)
  1. LAMOTRIGINE [Suspect]
     Active Substance: LAMOTRIGINE
     Indication: Overdose
     Dosage: OVERDOSE
  2. VORTIOXETINE [Suspect]
     Active Substance: VORTIOXETINE
     Indication: Overdose
     Dosage: OVERDOSE
  3. LURASIDONE [Suspect]
     Active Substance: LURASIDONE
     Indication: Overdose
     Dosage: OVERDOSE
  4. BUPROPION [Suspect]
     Active Substance: BUPROPION
     Indication: Overdose
     Dosage: OVERDOSE
  5. ESCITALOPRAM [Suspect]
     Active Substance: ESCITALOPRAM OXALATE
     Indication: Overdose

REACTIONS (5)
  - Serotonin syndrome [Recovering/Resolving]
  - Encephalopathy [Recovering/Resolving]
  - Pneumonia aspiration [Recovering/Resolving]
  - Overdose [Unknown]
  - Rhabdomyolysis [Recovering/Resolving]
